FAERS Safety Report 11397532 (Version 2)
Quarter: 2018Q1

REPORT INFORMATION
  Report Type: Spontaneous
  Country: US (occurrence: US)
  Receive Date: 20150819
  Receipt Date: 20180330
  Transmission Date: 20180508
  Serious: Yes (Death, Other)
  Sender: FDA-Public Use
  Company Number: US-ABBVIE-15P-163-1447295-00

PATIENT
  Age: 51 Year
  Sex: Male

DRUGS (4)
  1. TESTOPEL [Suspect]
     Active Substance: TESTOSTERONE
     Dosage: ROUTE PELLETS IMPLANTED INTO HIP- SECOND IMPLANT
     Route: 065
     Dates: start: 20130701, end: 20130701
  2. TESTOPEL [Suspect]
     Active Substance: TESTOSTERONE
     Indication: ANDROGEN REPLACEMENT THERAPY
     Dosage: ROUTE PELLETS IMPLANTED INTO HIP INITIAL IMPLANT
     Route: 065
     Dates: start: 20130128, end: 20130128
  3. ANDROGEL [Suspect]
     Active Substance: TESTOSTERONE
     Dosage: INCREASED TO 4 PUMPS
     Route: 061
     Dates: start: 20120522, end: 201308
  4. ANDROGEL [Suspect]
     Active Substance: TESTOSTERONE
     Indication: ANDROGEN REPLACEMENT THERAPY
     Dosage: 2 PUMPS A DAY
     Route: 061
     Dates: start: 20120326

REACTIONS (5)
  - Injury [Unknown]
  - Myocardial infarction [Fatal]
  - Cardiac arrest [Fatal]
  - Loss of consciousness [Not Recovered/Not Resolved]
  - Drug ineffective [Unknown]

NARRATIVE: CASE EVENT DATE: 20130814
